FAERS Safety Report 19933491 (Version 1)
Quarter: 2021Q4

REPORT INFORMATION
  Report Type: Report from Study
  Country: US (occurrence: US)
  Receive Date: 20211008
  Receipt Date: 20211008
  Transmission Date: 20220303
  Serious: Yes (Death)
  Sender: FDA-Public Use
  Company Number: US-TAIHO ONCOLOGY INC-EU-2021-03169

PATIENT
  Age: 45 Year
  Sex: Male
  Weight: 90.8 kg

DRUGS (8)
  1. LONSURF [Suspect]
     Active Substance: TIPIRACIL HYDROCHLORIDE\TRIFLURIDINE
     Indication: Rectal cancer
     Dosage: CURRENT CYCLE UNKNOWN
     Route: 048
     Dates: start: 20210916
  2. TAMSULOSIN HYDROCHLORIDE [Concomitant]
     Active Substance: TAMSULOSIN HYDROCHLORIDE
  3. HYDROCODONE;ACETAMINOPHEN [Concomitant]
  4. LEVOFLOXACIN [Concomitant]
     Active Substance: LEVOFLOXACIN
     Dosage: DOSE: 25 MG/ML
  5. FUROSEMIDE [Concomitant]
     Active Substance: FUROSEMIDE
  6. LISINOPRIL [Concomitant]
     Active Substance: LISINOPRIL
  7. CARBIDOPA [Concomitant]
     Active Substance: CARBIDOPA
  8. ELIQUIS [Concomitant]
     Active Substance: APIXABAN

REACTIONS (1)
  - Death [Fatal]

NARRATIVE: CASE EVENT DATE: 20211001
